FAERS Safety Report 5531544-7 (Version None)
Quarter: 2007Q4

REPORT INFORMATION
  Report Type: 
  Country: None (occurrence: None)
  Receive Date: 20071128
  Receipt Date: 20071128
  Transmission Date: 20080405
  Serious: Yes (Life-Threatening, Other)
  Sender: FDA-Public Use
  Company Number: None

PATIENT
  Age: 25 Year
  Sex: Female
  Weight: 99.7913 kg

DRUGS (1)
  1. CHANTIX [Suspect]
     Indication: SMOKING CESSATION THERAPY
     Dosage: .5MG 1XDAY PO
     Route: 048
     Dates: start: 20070921, end: 20070925

REACTIONS (9)
  - ABNORMAL BEHAVIOUR [None]
  - ANGER [None]
  - FEAR [None]
  - IRRITABILITY [None]
  - MANIA [None]
  - TREMOR [None]
  - TUNNEL VISION [None]
  - VISUAL DISTURBANCE [None]
  - VISUAL FIELD DEFECT [None]
